FAERS Safety Report 7716566-X (Version None)
Quarter: 2011Q3

REPORT INFORMATION
  Report Type: 
  Country: None (occurrence: None)
  Receive Date: 20110829
  Receipt Date: 20110823
  Transmission Date: 20111222
  Serious: Yes (Death, Life-Threatening, Other)
  Sender: FDA-Public Use
  Company Number: JP-ASTRAZENECA-2011SE50612

PATIENT
  Age: 62 Year
  Sex: Male

DRUGS (1)
  1. DIPRIVAN [Suspect]
     Indication: SEDATION
     Dosage: UNKNOWN DOSE
     Route: 042

REACTIONS (5)
  - CARDIAC ARREST [None]
  - BLOOD PRESSURE DECREASED [None]
  - RESPIRATORY DISORDER [None]
  - GENERAL PHYSICAL CONDITION ABNORMAL [None]
  - TACHYCARDIA [None]
